FAERS Safety Report 6244201-9 (Version None)
Quarter: 2009Q2

REPORT INFORMATION
  Report Type: 
  Country: None (occurrence: None)
  Receive Date: 20090625
  Receipt Date: 20090618
  Transmission Date: 20091009
  Serious: Yes (Other)
  Sender: FDA-Public Use
  Company Number: US-BIOGENIDEC-2007BI022041

PATIENT
  Age: 44 Year
  Sex: Female

DRUGS (5)
  1. TYSABRI [Suspect]
     Indication: MULTIPLE SCLEROSIS
     Route: 042
     Dates: start: 20061228, end: 20080829
  2. AVONEX [Concomitant]
     Indication: MULTIPLE SCLEROSIS
  3. ZANAFLEX [Concomitant]
     Indication: MUSCLE SPASMS
  4. BACLOFEN [Concomitant]
     Indication: MUSCLE SPASMS
  5. LYRICA [Concomitant]
     Indication: MUSCLE SPASMS

REACTIONS (9)
  - FALL [None]
  - JOINT SPRAIN [None]
  - PAIN [None]
  - PAIN IN EXTREMITY [None]
  - RADIUS FRACTURE [None]
  - SINUSITIS [None]
  - UPPER LIMB FRACTURE [None]
  - VISION BLURRED [None]
  - WRIST FRACTURE [None]
